FAERS Safety Report 7362203-6 (Version None)
Quarter: 2011Q1

REPORT INFORMATION
  Report Type: 
  Country: None (occurrence: None)
  Receive Date: 20110318
  Receipt Date: 20110314
  Transmission Date: 20110831
  Serious: Yes (Other)
  Sender: FDA-Public Use
  Company Number: US-AMGEN-KDL393968

PATIENT
  Age: 69 Year
  Sex: Male
  Weight: 125.3 kg

DRUGS (6)
  1. NPLATE [Suspect]
     Dosage: 0.5 A?G/KG, UNK
     Dates: end: 20100415
  2. TEMAZEPAM [Concomitant]
  3. LEVOFLOXACIN [Concomitant]
  4. NPLATE [Suspect]
     Dosage: UNK UNK, UNK
     Dates: start: 20091030
  5. NPLATE [Suspect]
     Indication: IDIOPATHIC THROMBOCYTOPENIC PURPURA
     Dosage: UNK UNK, UNK
     Dates: start: 20091030
  6. SLEEPING MEDICATION NOS [Concomitant]

REACTIONS (6)
  - EMBOLISM ARTERIAL [None]
  - ARTHRALGIA [None]
  - BONE PAIN [None]
  - THROMBOCYTOPENIA [None]
  - CHRONIC LYMPHOCYTIC LEUKAEMIA [None]
  - THROMBOSIS [None]
